FAERS Safety Report 25762015 (Version 1)
Quarter: 2025Q3

REPORT INFORMATION
  Report Type: Spontaneous
  Country: US (occurrence: None)
  Receive Date: 20250904
  Receipt Date: 20250904
  Transmission Date: 20251021
  Serious: Yes (Disabling)
  Sender: FDA-CTU
  Company Number: None

PATIENT
  Age: 78 Year
  Sex: Male
  Weight: 70.31 kg

DRUGS (12)
  1. ORGOVYX [Suspect]
     Active Substance: RELUGOLIX
  2. Tamsulosin .4 mg x 2 [Concomitant]
     Dosage: FREQUENCY : TWICE A DAY;?
  3. AMLODIPINE BESYLATE [Concomitant]
     Active Substance: AMLODIPINE BESYLATE
  4. EZETIMIBE [Concomitant]
     Active Substance: EZETIMIBE
  5. ROSUVASTATIN [Concomitant]
     Active Substance: ROSUVASTATIN
  6. lpratropium spray .06 % as needed [Concomitant]
  7. PROLIA [Concomitant]
     Active Substance: DENOSUMAB
  8. ASPIRIN [Concomitant]
     Active Substance: ASPIRIN
  9. CoQ10 200 mg daily [Concomitant]
     Dosage: FREQUENCY : DAILY;?
  10. Vitamin daily [Concomitant]
     Dosage: FREQUENCY : DAILY;?
  11. Calcum 600-1200 daily [Concomitant]
     Dosage: FREQUENCY : DAILY;?
  12. Esomeprazole 20 mg daily [Concomitant]
     Dosage: FREQUENCY : DAILY;?

REACTIONS (9)
  - Arthralgia [None]
  - Fatigue [None]
  - Amnesia [None]
  - Procrastination [None]
  - Gynaecomastia [None]
  - Bowel movement irregularity [None]
  - Personality change [None]
  - Brain fog [None]
  - Hot flush [None]

NARRATIVE: CASE EVENT DATE: 20231101
